FAERS Safety Report 9831658 (Version 1)
Quarter: 2014Q1

REPORT INFORMATION
  Report Type: Spontaneous
  Country: US (occurrence: US)
  Receive Date: 20140121
  Receipt Date: 20140121
  Transmission Date: 20141002
  Serious: No
  Sender: FDA-Public Use
  Company Number: US-PFIZER INC-2014016076

PATIENT
  Sex: Female

DRUGS (3)
  1. SERTRALINE HCL [Suspect]
     Indication: PANIC ATTACK
     Dosage: 25 MG, DAILY
  2. SERTRALINE HCL [Suspect]
     Indication: ANXIETY
     Dosage: 50 MG, DAILY
  3. SERTRALINE HCL [Suspect]
     Dosage: 75 MG, DAILY

REACTIONS (2)
  - Stress [Unknown]
  - Drug ineffective [Unknown]
